FAERS Safety Report 22047113 (Version 1)
Quarter: 2023Q1

REPORT INFORMATION
  Report Type: Spontaneous
  Country: JP (occurrence: JP)
  Receive Date: 20230301
  Receipt Date: 20230301
  Transmission Date: 20230418
  Serious: Yes (Hospitalization, Other)
  Sender: FDA-Public Use
  Company Number: JP-UCBJ-CD202302197UCBPHAPROD

PATIENT
  Age: 53 Year
  Sex: Male

DRUGS (2)
  1. LEVETIRACETAM [Suspect]
     Active Substance: LEVETIRACETAM
     Indication: Product used for unknown indication
     Dosage: UNK
     Route: 048
  2. ZONISAMIDE [Concomitant]
     Active Substance: ZONISAMIDE
     Indication: Product used for unknown indication
     Route: 048

REACTIONS (3)
  - Lumbar vertebral fracture [Unknown]
  - Seizure [Unknown]
  - Osteoporosis [Unknown]
